FAERS Safety Report 12743487 (Version 2)
Quarter: 2016Q3

REPORT INFORMATION
  Report Type: Spontaneous
  Country: CH (occurrence: US)
  Receive Date: 20160914
  Receipt Date: 20160927
  Transmission Date: 20161109
  Serious: Yes (Other)
  Sender: FDA-Public Use
  Company Number: CH-LPDUSPRD-20160782

PATIENT
  Age: 47 Year
  Sex: Female

DRUGS (2)
  1. INJECTAFER [Suspect]
     Active Substance: FERRIC CARBOXYMALTOSE
     Dosage: 750 MG
     Route: 041
  2. METHOTREXATE. [Concomitant]
     Active Substance: METHOTREXATE
     Dosage: DOSE NOT PROVIDED
     Route: 065

REACTIONS (6)
  - Fatigue [Unknown]
  - Exercise tolerance decreased [Unknown]
  - Haemoglobin decreased [Unknown]
  - Myasthenia gravis [Unknown]
  - Uterine haemorrhage [Unknown]
  - Microcytosis [Unknown]
